FAERS Safety Report 4333338-7 (Version None)
Quarter: 2004Q2

REPORT INFORMATION
  Report Type: 
  Country: None (occurrence: None)
  Receive Date: 20040406
  Receipt Date: 20040329
  Transmission Date: 20050107
  Serious: Yes (Hospitalization)
  Sender: FDA-Public Use
  Company Number: FR-MERCK-0403FRA00110

PATIENT
  Age: 29 Year
  Sex: Female

DRUGS (4)
  1. CRIXIVAN [Suspect]
     Indication: HIV INFECTION
     Route: 048
     Dates: start: 20030718, end: 20031118
  2. LAMIVUDINE AND ZIDOVUDINE [Concomitant]
     Indication: HIV INFECTION
     Route: 048
     Dates: start: 20030718
  3. RITONAVIR [Suspect]
     Indication: HIV INFECTION
     Route: 048
     Dates: start: 20030718, end: 20031118
  4. SULFAMETHOXAZOLE AND TRIMETHOPRIM [Suspect]
     Indication: HIV INFECTION
     Route: 048
     Dates: start: 20030718, end: 20031118

REACTIONS (8)
  - ASCITES [None]
  - CAESAREAN SECTION [None]
  - COMPLICATIONS OF MATERNAL EXPOSURE TO THERAPEUTIC DRUGS [None]
  - DRUG EXPOSURE DURING PREGNANCY [None]
  - HEPATIC CIRRHOSIS [None]
  - HEPATITIS CHOLESTATIC [None]
  - SPLENOMEGALY [None]
  - VARICES OESOPHAGEAL [None]
